FAERS Safety Report 19504501 (Version 6)
Quarter: 2022Q3

REPORT INFORMATION
  Report Type: Report from Study
  Country: GB (occurrence: GB)
  Receive Date: 20210708
  Receipt Date: 20220818
  Transmission Date: 20221026
  Serious: Yes (Other)
  Sender: FDA-Public Use
  Company Number: GB-CELLTRION INC.-2021GB008965

PATIENT

DRUGS (25)
  1. TRASTUZUMAB [Suspect]
     Active Substance: TRASTUZUMAB
     Indication: Breast cancer metastatic
     Dosage: 675 MG, EVERY 3 WEEKS (PHARMACEUTICAL DOSE FORM: 230) (CUMULATIVE DOSE: 96.42857MG)
     Route: 042
     Dates: start: 20160104, end: 20160128
  2. TRASTUZUMAB [Suspect]
     Active Substance: TRASTUZUMAB
     Dosage: 525 MG, EVERY 3 WEEKS (PHARMACEUTICAL DOSE FORM: 230) (CUMULATIVE DOSE: 675.0MG)
     Route: 042
     Dates: start: 20160128, end: 20160218
  3. TRASTUZUMAB [Suspect]
     Active Substance: TRASTUZUMAB
     Dosage: 450 MG, EVERY 3 WEEKS (PHARMACEUTICAL DOSE FORM: 230) (CUMULATIVE DOSE: 1478.5714MG)
     Route: 042
     Dates: start: 20160310
  4. TRASTUZUMAB [Suspect]
     Active Substance: TRASTUZUMAB
     Dosage: 400 MG, EVERY 3 WEEKS (PHARMACEUTICAL DOSE FORM: 230) (CUMULATIVE DOSE: 4513.492MG)
     Route: 042
     Dates: start: 20160825
  5. TRASTUZUMAB [Suspect]
     Active Substance: TRASTUZUMAB
     Dosage: 441 MG, EVERY 3 WEEKS (CUMULATIVE DOSE: 19676.125MG)
     Route: 042
     Dates: start: 20180726
  6. TRASTUZUMAB [Suspect]
     Active Substance: TRASTUZUMAB
     Dosage: 378 MG, EVERY 3 WEEKS (CUMULATIVE DOSE: 26712.0MG)
     Route: 042
     Dates: start: 20200124
  7. TRASTUZUMAB [Suspect]
     Active Substance: TRASTUZUMAB
     Dosage: 336 MG, EVERY 3 WEEKS (CUMULATIVE DOSE: 25535.334MG)
     Route: 042
     Dates: start: 20200515
  8. TRASTUZUMAB [Suspect]
     Active Substance: TRASTUZUMAB
     Dosage: 378 MG, EVERY 3 WEEKS (CUMULATIVE DOSE: 31373.25MG)
     Route: 042
     Dates: start: 20201009
  9. PERTUZUMAB [Suspect]
     Active Substance: PERTUZUMAB
     Indication: Breast cancer metastatic
     Dosage: 420 MG, EVERY 3 WEEKS (CUMULATIVE DOSE: 960.0MG)
     Route: 042
     Dates: start: 20160218
  10. PERTUZUMAB [Suspect]
     Active Substance: PERTUZUMAB
     Dosage: 840 MG, EVERY 3 WEEKS (CUMULATIVE DOSE: 120.0MG)
     Route: 042
     Dates: start: 20160104, end: 20160128
  11. DOCETAXEL [Suspect]
     Active Substance: DOCETAXEL
     Indication: Breast cancer metastatic
     Dosage: 148 MG, EVERY 3 WEEKS (CUMULATIVE DOSE: 28.190475MG)
     Route: 042
     Dates: start: 20160105, end: 20160218
  12. DOCETAXEL [Suspect]
     Active Substance: DOCETAXEL
     Dosage: 140 MG, EVERY 3 WEEKS (CUMULATIVE DOSE: 460.0MG)
     Route: 042
     Dates: start: 20160310
  13. DENOSUMAB [Suspect]
     Active Substance: DENOSUMAB
     Indication: Breast cancer metastatic
     Dosage: 120 MG
     Route: 058
     Dates: start: 20151201
  14. LETROZOLE [Suspect]
     Active Substance: LETROZOLE
     Indication: Breast cancer metastatic
     Dosage: 2.5 UG
     Route: 048
     Dates: start: 20160329
  15. CALCIUM\CHOLECALCIFEROL [Concomitant]
     Active Substance: CALCIUM\CHOLECALCIFEROL
     Dosage: 1 DF, 2X/DAY (ALSO REPORTED AS 2 DF, DAILY)
     Route: 048
     Dates: start: 20160101
  16. LANSOPRAZOLE [Concomitant]
     Active Substance: LANSOPRAZOLE
     Dosage: 30 MG, DAILY (TABLET UNCOATED, ORAL)
     Route: 048
     Dates: start: 20151229
  17. DEXAMETHASONE [Concomitant]
     Active Substance: DEXAMETHASONE
     Dosage: 16 MG, DAILY (8 MG EVERY 0.5 DAY) (TABLET UNCOATED, ORAL)
     Route: 048
     Dates: start: 20160127, end: 20160129
  18. DEXAMETHASONE [Concomitant]
     Active Substance: DEXAMETHASONE
     Dosage: 16 MG, DAILY (8 MG EVERY 0.5 DAY) (TABLET UNCOATED, ORAL)
     Route: 048
     Dates: start: 20160103, end: 20160105
  19. DEXAMETHASONE [Concomitant]
     Active Substance: DEXAMETHASONE
     Dosage: 2 MG
     Dates: start: 20220113, end: 20220225
  20. DEXAMETHASONE [Concomitant]
     Active Substance: DEXAMETHASONE
     Dosage: 4 MG
     Dates: start: 20211130
  21. DEXAMETHASONE [Concomitant]
     Active Substance: DEXAMETHASONE
     Dosage: 8 MG
     Dates: start: 20211123, end: 20211129
  22. DEXAMETHASONE [Concomitant]
     Active Substance: DEXAMETHASONE
     Dosage: 10 MG
     Dates: start: 20211116, end: 20211122
  23. ASTRAZENECA COVID-19 VACCINE [Concomitant]
     Active Substance: AZD-1222
     Indication: COVID-19
  24. AMOXICILLIN\CLAVULANATE POTASSIUM [Concomitant]
     Active Substance: AMOXICILLIN\CLAVULANATE POTASSIUM
     Dosage: 125
     Dates: start: 20220504, end: 20220510
  25. NITROFURANTOIN [Concomitant]
     Active Substance: NITROFURANTOIN
     Dosage: UNK
     Dates: start: 20220429, end: 20220503

REACTIONS (10)
  - Neuropathy peripheral [Recovered/Resolved]
  - Hypomagnesaemia [Recovered/Resolved]
  - Onychalgia [Recovered/Resolved]
  - Arthralgia [Not Recovered/Not Resolved]
  - Diarrhoea [Not Recovered/Not Resolved]
  - Ejection fraction decreased [Recovered/Resolved]
  - Fatigue [Recovered/Resolved]
  - Nausea [Recovered/Resolved]
  - Rash [Recovered/Resolved]
  - Urinary tract infection [Recovered/Resolved]

NARRATIVE: CASE EVENT DATE: 20160101
